FAERS Safety Report 6149533-0 (Version None)
Quarter: 2009Q2

REPORT INFORMATION
  Report Type: 
  Country: None (occurrence: None)
  Receive Date: 20090409
  Receipt Date: 20090406
  Transmission Date: 20091009
  Serious: Yes (Hospitalization)
  Sender: FDA-Public Use
  Company Number: JP-BAYER-200910508BYL

PATIENT
  Age: 56 Year
  Sex: Female
  Weight: 53 kg

DRUGS (16)
  1. NEXAVAR [Suspect]
     Indication: RENAL CELL CARCINOMA STAGE IV
     Dosage: TOTAL DAILY DOSE: 800 MG  UNIT DOSE: 200 MG
     Route: 048
     Dates: start: 20080402, end: 20080410
  2. NEXAVAR [Suspect]
     Dosage: TOTAL DAILY DOSE: 400 MG  UNIT DOSE: 200 MG
     Route: 048
     Dates: start: 20080411
  3. NEXAVAR [Suspect]
     Dosage: UNIT DOSE: 200 MG
     Route: 048
     Dates: start: 20080602
  4. GENTAMICIN [Concomitant]
     Route: 062
     Dates: start: 20080414, end: 20080421
  5. JUSO [Concomitant]
     Route: 048
     Dates: start: 20080416
  6. FLOMOX [Concomitant]
     Route: 048
     Dates: start: 20080424, end: 20080429
  7. MUCOSTA [Concomitant]
     Route: 048
     Dates: start: 20080424, end: 20080429
  8. LOXONIN [Concomitant]
     Route: 048
     Dates: start: 20080426, end: 20080430
  9. KALIMATE [Concomitant]
     Route: 048
     Dates: start: 20080428, end: 20080714
  10. ALPROSTADIL [Concomitant]
     Route: 061
     Dates: start: 20080507, end: 20080515
  11. ALPROSTADIL [Concomitant]
     Route: 061
     Dates: start: 20080613, end: 20080623
  12. LASIX [Concomitant]
     Route: 048
     Dates: start: 20080515, end: 20080603
  13. SELTOUCH [Concomitant]
     Route: 062
     Dates: start: 20080520, end: 20080714
  14. SODIUM BICARBONATE [Concomitant]
     Route: 048
     Dates: start: 20080416, end: 20080714
  15. CALONAL [Concomitant]
     Route: 048
     Dates: start: 20080530, end: 20080714
  16. MOBIC [Concomitant]
     Route: 048
     Dates: start: 20080605, end: 20080714

REACTIONS (11)
  - ACIDOSIS [None]
  - CONSTIPATION [None]
  - HERPES ZOSTER [None]
  - HYPERTENSION [None]
  - OROPHARYNGEAL PAIN [None]
  - PANCREATIC ENZYMES INCREASED [None]
  - POST HERPETIC NEURALGIA [None]
  - PURULENCE [None]
  - PYREXIA [None]
  - RASH [None]
  - RENAL IMPAIRMENT [None]
